FAERS Safety Report 9855816 (Version 1)
Quarter: 2014Q1

REPORT INFORMATION
  Report Type: Spontaneous
  Country: AR (occurrence: AR)
  Receive Date: 20140130
  Receipt Date: 20140130
  Transmission Date: 20141002
  Serious: Yes (Hospitalization)
  Sender: FDA-Public Use
  Company Number: PHHY2014AR009299

PATIENT
  Age: 68 Year
  Sex: 0

DRUGS (6)
  1. DICLOFENAC [Suspect]
  2. PREDNISOLONE [Suspect]
  3. LEUPRORELIN [Suspect]
  4. ABIRATERONE [Suspect]
  5. COLECALCIFEROL [Concomitant]
  6. ZOLEDRONIC ACID [Concomitant]

REACTIONS (2)
  - Thrombocytopenia [Recovered/Resolved]
  - Anaemia [Unknown]
